FAERS Safety Report 23206099 (Version 1)
Quarter: 2023Q4

REPORT INFORMATION
  Report Type: Spontaneous
  Country: US (occurrence: US)
  Receive Date: 20231120
  Receipt Date: 20231120
  Transmission Date: 20240110
  Serious: No
  Sender: FDA-Public Use
  Company Number: US-BAYER-2023A160605

PATIENT
  Age: 25 Year
  Sex: Female

DRUGS (1)
  1. MIRENA [Suspect]
     Active Substance: LEVONORGESTREL
     Indication: Ovarian cyst
     Dosage: 20?G/DAY
     Route: 015
     Dates: start: 202203

REACTIONS (3)
  - Device expulsion [Recovered/Resolved]
  - Off label use of device [None]
  - Device use issue [None]
